FAERS Safety Report 20108255 (Version 2)
Quarter: 2021Q4

REPORT INFORMATION
  Report Type: Other
  Country: None (occurrence: GB)
  Receive Date: 20211124
  Receipt Date: 20211202
  Transmission Date: 20220303
  Serious: Yes (Other)
  Sender: FDA-Public Use
  Company Number: GB-Nova Laboratories Limited-2122275

PATIENT
  Age: 61 Year
  Sex: Male

DRUGS (3)
  1. PURIXAN [Suspect]
     Active Substance: MERCAPTOPURINE
     Indication: Crohn^s disease
     Dates: start: 2014
  2. PURIXAN [Suspect]
     Active Substance: MERCAPTOPURINE
     Dates: start: 201503
  3. PURIXAN [Suspect]
     Active Substance: MERCAPTOPURINE
     Dates: start: 2016

REACTIONS (3)
  - Kaposi^s sarcoma [Recovered/Resolved]
  - Off label use [None]
  - Lymphopenia [Recovered/Resolved]
